FAERS Safety Report 11013776 (Version 2)
Quarter: 2015Q2

REPORT INFORMATION
  Report Type: Spontaneous
  Country: US (occurrence: US)
  Receive Date: 20150412
  Receipt Date: 20150526
  Transmission Date: 20150821
  Serious: No
  Sender: FDA-Public Use
  Company Number: US-JNJFOC-20140700618

PATIENT
  Sex: Male

DRUGS (2)
  1. PANCREAZE [Suspect]
     Active Substance: PANCRELIPASE
     Indication: PANCREATIC INSUFFICIENCY
     Route: 048
     Dates: start: 1995, end: 2012
  2. MOTRIN [Concomitant]
     Active Substance: IBUPROFEN
     Indication: PAIN
     Route: 048

REACTIONS (1)
  - Abnormal loss of weight [Not Recovered/Not Resolved]

NARRATIVE: CASE EVENT DATE: 2012
